FAERS Safety Report 21448244 (Version 2)
Quarter: 2022Q4

REPORT INFORMATION
  Report Type: Report from Study
  Country: US (occurrence: US)
  Receive Date: 20221012
  Receipt Date: 20221017
  Transmission Date: 20230112
  Serious: Yes (Death, Other)
  Sender: FDA-Public Use
  Company Number: US-BRISTOL-MYERS SQUIBB COMPANY-2022-117403

PATIENT
  Age: 63 Year
  Sex: Female

DRUGS (1)
  1. REVLIMID [Suspect]
     Active Substance: LENALIDOMIDE
     Indication: Plasma cell myeloma
     Dosage: TAKE 1 CAPSULE (5MG) BY MOUTH ONCE DAILY FOR 21 DAYS, THEN HOLD FOR 7 DAYS, THEN REPEAT
     Route: 048
     Dates: start: 20220909

REACTIONS (1)
  - Death [Fatal]

NARRATIVE: CASE EVENT DATE: 20221005
